FAERS Safety Report 11757751 (Version 1)
Quarter: 2015Q4

REPORT INFORMATION
  Report Type: Report from Study
  Country: BR (occurrence: BR)
  Receive Date: 20151120
  Receipt Date: 20151120
  Transmission Date: 20160304
  Serious: Yes (Other)
  Sender: FDA-Public Use
  Company Number: BR-BIOGENIDEC-2015BI153407

PATIENT
  Age: 43 Year
  Sex: Female

DRUGS (8)
  1. GABAPENTIN. [Concomitant]
     Active Substance: GABAPENTIN
  2. LAMOTRIGINE. [Concomitant]
     Active Substance: LAMOTRIGINE
  3. SODIUM ALENDRONATE [Concomitant]
     Indication: OSTEOPOROSIS
  4. TYSABRI [Suspect]
     Active Substance: NATALIZUMAB
     Indication: MULTIPLE SCLEROSIS
     Route: 042
     Dates: start: 201507, end: 20150822
  5. SIMVASTIN [Concomitant]
     Active Substance: SIMVASTATIN
     Indication: BLOOD CHOLESTEROL
  6. BACLOFEN. [Concomitant]
     Active Substance: BACLOFEN
  7. ESOMEPRAZOLE [Concomitant]
     Active Substance: ESOMEPRAZOLE
     Indication: GASTRITIS
  8. HIDANTAL [Concomitant]
     Active Substance: PHENYTOIN SODIUM
     Indication: TRIGEMINAL NEURALGIA

REACTIONS (13)
  - Visual impairment [Not Recovered/Not Resolved]
  - Tremor [Not Recovered/Not Resolved]
  - Pulmonary mass [Not Recovered/Not Resolved]
  - Hypotension [Not Recovered/Not Resolved]
  - Body temperature increased [Not Recovered/Not Resolved]
  - Chills [Not Recovered/Not Resolved]
  - Seizure [Recovered/Resolved]
  - Pneumonia [Not Recovered/Not Resolved]
  - Inflammation [Unknown]
  - Decreased immune responsiveness [Unknown]
  - Multiple sclerosis relapse [Not Recovered/Not Resolved]
  - Urinary tract infection [Not Recovered/Not Resolved]
  - Vaginal infection [Unknown]

NARRATIVE: CASE EVENT DATE: 201507
